FAERS Safety Report 14091047 (Version 2)
Quarter: 2017Q4

REPORT INFORMATION
  Report Type: Report from Study
  Country: US (occurrence: US)
  Receive Date: 20171016
  Receipt Date: 20171117
  Transmission Date: 20180321
  Serious: No
  Sender: FDA-Public Use
  Company Number: US-ROCHE-2007035

PATIENT
  Age: 50 Year
  Sex: Female

DRUGS (2)
  1. OCREVUS [Suspect]
     Active Substance: OCRELIZUMAB
     Dosage: SPLIT DOSE OF 300 MG ON DAY 1 AND 300 MG ON DAY 15 FOR EVERY 6 MONTHS
     Route: 065
     Dates: start: 20170629
  2. OCREVUS [Suspect]
     Active Substance: OCRELIZUMAB
     Indication: PROGRESSIVE MULTIPLE SCLEROSIS
     Dosage: SPLIT DOSE OF 300 MG ON DAY 1 AND 300 MG ON DAY 15 FOR EVERY 6 MONTHS
     Route: 065
     Dates: start: 20170614

REACTIONS (1)
  - Tooth abscess [Not Recovered/Not Resolved]

NARRATIVE: CASE EVENT DATE: 201709
